FAERS Safety Report 7951738-0 (Version None)
Quarter: 2011Q4

REPORT INFORMATION
  Report Type: 
  Country: None (occurrence: None)
  Receive Date: 20111201
  Receipt Date: 20111125
  Transmission Date: 20120403
  Serious: Yes (Death)
  Sender: FDA-Public Use
  Company Number: JP-CELGENEUS-087-50794-11113932

PATIENT
  Sex: Male
  Weight: 47 kg

DRUGS (6)
  1. VIDAZA [Suspect]
     Indication: MYELODYSPLASTIC SYNDROME
     Dosage: 75 MILLIGRAM/SQ. METER
     Route: 058
     Dates: start: 20111110, end: 20111116
  2. PRIMOBOLAN-DEPOT INJ [Concomitant]
     Dosage: 20 MILLIGRAM
     Route: 048
     Dates: start: 20110831, end: 20111123
  3. ITRACONAZOLE [Concomitant]
     Dosage: 100 MILLIGRAM
     Route: 048
     Dates: start: 20111028, end: 20111123
  4. GRAN [Concomitant]
     Dosage: 75 MICROGRAM
     Route: 041
     Dates: start: 20110901, end: 20110908
  5. LEVOFLOXACIN [Concomitant]
     Dosage: 500 MILLIGRAM
     Route: 048
     Dates: start: 20111028, end: 20111123
  6. GRAN [Concomitant]
     Dosage: 75 MICROGRAM
     Route: 041
     Dates: start: 20111021, end: 20111124

REACTIONS (1)
  - SEPSIS [None]
